FAERS Safety Report 9696696 (Version 1)
Quarter: 2013Q4

REPORT INFORMATION
  Report Type: Spontaneous
  Country: US (occurrence: US)
  Receive Date: 20131119
  Receipt Date: 20131119
  Transmission Date: 20140711
  Serious: Yes (Disabling, Other)
  Sender: FDA-Public Use
  Company Number: US-UCBSA-103512

PATIENT
  Sex: 0

DRUGS (1)
  1. CIMZIA [Suspect]

REACTIONS (2)
  - Cerebrovascular accident [Unknown]
  - Blindness unilateral [Unknown]
